FAERS Safety Report 13362329 (Version 1)
Quarter: 2017Q1

REPORT INFORMATION
  Report Type: Spontaneous
  Country: US (occurrence: US)
  Receive Date: 20170322
  Receipt Date: 20170322
  Transmission Date: 20170429
  Serious: Yes (Hospitalization, Other)
  Sender: FDA-Public Use
  Company Number: None

PATIENT
  Age: 56 Year
  Sex: Female
  Weight: 83.25 kg

DRUGS (10)
  1. IRON [Concomitant]
     Active Substance: IRON
  2. ADVIL COLD AND SINUS [Concomitant]
     Active Substance: IBUPROFEN\PSEUDOEPHEDRINE HYDROCHLORIDE
  3. FISH OIL OMEGA 3 [Concomitant]
     Active Substance: FISH OIL
  4. VITAMIN D3 [Concomitant]
     Active Substance: CHOLECALCIFEROL
  5. VITAMIN C [Concomitant]
     Active Substance: ASCORBIC ACID
  6. ECHINACEA [Concomitant]
     Active Substance: ECHINACEA, UNSPECIFIED
  7. VICKS NYQUIL [Concomitant]
     Active Substance: ACETAMINOPHEN\DEXTROMETHORPHAN HYDROBROMIDE\DOXYLAMINE SUCCINATE
  8. MULTIVITAMIN [Concomitant]
     Active Substance: VITAMINS
  9. TRANSDERM SCOP [Suspect]
     Active Substance: SCOPOLAMINE
     Indication: MOTION SICKNESS
     Dosage: QUANTITY:1 PATCH(ES);OTHER FREQUENCY:EVERY 72 HOURS;?
     Route: 062
     Dates: start: 20170311, end: 20170318
  10. VITAMIN E [Concomitant]
     Active Substance: .ALPHA.-TOCOPHEROL

REACTIONS (3)
  - Nausea [None]
  - Dehydration [None]
  - Malaise [None]

NARRATIVE: CASE EVENT DATE: 20170319
